FAERS Safety Report 5843741-1 (Version None)
Quarter: 2008Q3

REPORT INFORMATION
  Report Type: 
  Country: None (occurrence: None)
  Receive Date: 20080813
  Receipt Date: 20080602
  Transmission Date: 20090109
  Serious: No
  Sender: FDA-Public Use
  Company Number: US-BRISTOL-MYERS SQUIBB COMPANY-14213110

PATIENT
  Age: 40 Year
  Sex: Female

DRUGS (4)
  1. IXEMPRA KIT [Suspect]
     Indication: BREAST CANCER METASTATIC
  2. AVASTIN [Concomitant]
  3. XELODA [Concomitant]
  4. RADIATION THERAPY [Concomitant]

REACTIONS (2)
  - EPISTAXIS [None]
  - RECALL PHENOMENON [None]
